FAERS Safety Report 7319475-3 (Version None)
Quarter: 2011Q1

REPORT INFORMATION
  Report Type: 
  Country: None (occurrence: None)
  Receive Date: 20110228
  Receipt Date: 20100416
  Transmission Date: 20110831
  Serious: No
  Sender: FDA-Public Use
  Company Number: A0853942A

PATIENT
  Age: 55 Year
  Sex: Male

DRUGS (3)
  1. LAMICTAL [Suspect]
     Route: 048
     Dates: start: 20070101
  2. SEROQUEL [Concomitant]
  3. MULTIPLE MEDICATION [Concomitant]

REACTIONS (1)
  - HEADACHE [None]
